FAERS Safety Report 7956393-1 (Version None)
Quarter: 2011Q4

REPORT INFORMATION
  Report Type: 
  Country: None (occurrence: None)
  Receive Date: 20111205
  Receipt Date: 20111201
  Transmission Date: 20120403
  Serious: Yes (Death)
  Sender: FDA-Public Use
  Company Number: VE-PFIZER INC-2011294559

PATIENT
  Sex: Male

DRUGS (2)
  1. LIPITOR [Concomitant]
  2. CADUET [Suspect]

REACTIONS (1)
  - DEATH [None]
